FAERS Safety Report 19710960 (Version 6)
Quarter: 2022Q1

REPORT INFORMATION
  Report Type: Report from Study
  Country: CO (occurrence: CO)
  Receive Date: 20210817
  Receipt Date: 20220322
  Transmission Date: 20220423
  Serious: Yes (Hospitalization)
  Sender: FDA-Public Use
  Company Number: PHHY2018CO054505

PATIENT
  Age: 64 Year
  Sex: Female
  Weight: 60 kg

DRUGS (8)
  1. XOLAIR [Suspect]
     Active Substance: OMALIZUMAB
     Indication: Asthma
     Dosage: 450 MG, BIW
     Route: 058
     Dates: start: 20180614
  2. XOLAIR [Suspect]
     Active Substance: OMALIZUMAB
     Dosage: 450 MG, BIW (EVERY 15 DAYS)
     Route: 058
     Dates: end: 20180706
  3. XOLAIR [Suspect]
     Active Substance: OMALIZUMAB
     Dosage: 150 MG (3 AMPOULES, EVERY 15 DAYS)
     Route: 065
     Dates: start: 20200228
  4. XOLAIR [Suspect]
     Active Substance: OMALIZUMAB
     Dosage: 900 MG, QMO
     Route: 058
  5. XOLAIR [Suspect]
     Active Substance: OMALIZUMAB
     Dosage: 450 MG, BIW
     Route: 058
  6. ALBUTEROL [Suspect]
     Active Substance: ALBUTEROL
     Indication: Product used for unknown indication
     Dosage: UNK
     Route: 065
  7. LEUTRIEN [Concomitant]
     Indication: Product used for unknown indication
     Dosage: UNK
     Route: 065
  8. SERETIDE [Concomitant]
     Active Substance: FLUTICASONE PROPIONATE\SALMETEROL XINAFOATE
     Indication: Product used for unknown indication
     Dosage: UNK
     Route: 065

REACTIONS (29)
  - Accident [Recovering/Resolving]
  - Ankle fracture [Recovering/Resolving]
  - Cellulitis [Recovering/Resolving]
  - Decreased appetite [Recovering/Resolving]
  - COVID-19 [Recovered/Resolved with Sequelae]
  - Headache [Recovered/Resolved]
  - Pyrexia [Recovered/Resolved]
  - Pneumonia [Recovered/Resolved]
  - Thrombosis [Recovered/Resolved]
  - Gait disturbance [Unknown]
  - Hypertension [Unknown]
  - Chills [Unknown]
  - Arthralgia [Unknown]
  - Influenza [Unknown]
  - Chest discomfort [Unknown]
  - Breast discharge [Unknown]
  - Tremor [Unknown]
  - Hypersensitivity [Unknown]
  - Alopecia [Unknown]
  - Hernia [Unknown]
  - Agitation [Unknown]
  - Malaise [Unknown]
  - Arthropathy [Unknown]
  - Pain [Unknown]
  - Abdominal pain [Unknown]
  - Feeling abnormal [Unknown]
  - Asthenia [Unknown]
  - Dyspnoea [Unknown]
  - Overdose [Unknown]

NARRATIVE: CASE EVENT DATE: 20161001
